FAERS Safety Report 15151140 (Version 1)
Quarter: 2018Q3

REPORT INFORMATION
  Report Type: Spontaneous
  Country: GR (occurrence: GR)
  Receive Date: 20180716
  Receipt Date: 20180716
  Transmission Date: 20181010
  Serious: Yes (Other)
  Sender: FDA-Public Use
  Company Number: PHHY2018GR007964

PATIENT
  Age: 55 Year
  Sex: Female

DRUGS (3)
  1. ORIZAL [Concomitant]
     Active Substance: AMLODIPINE BESYLATE\OLMESARTAN MEDOXOMIL
     Indication: PRODUCT USED FOR UNKNOWN INDICATION
     Route: 065
  2. AFINITOR [Suspect]
     Active Substance: EVEROLIMUS
     Indication: NEUROENDOCRINE TUMOUR
     Dosage: 10 MG, OT
     Route: 065
     Dates: start: 201607
  3. LOBIVON [Concomitant]
     Active Substance: NEBIVOLOL HYDROCHLORIDE
     Indication: PRODUCT USED FOR UNKNOWN INDICATION
     Dosage: UNK
     Route: 065

REACTIONS (13)
  - Thrombotic microangiopathy [Unknown]
  - Renal impairment [Not Recovered/Not Resolved]
  - Necrosis [Unknown]
  - Lymphadenitis [Unknown]
  - Stenosis [Unknown]
  - Retroperitoneal oedema [Unknown]
  - Tubulointerstitial nephritis [Unknown]
  - Metastases to liver [Unknown]
  - Vascular hyalinosis [Unknown]
  - Dehydration [Unknown]
  - Kidney fibrosis [Unknown]
  - Renal tubular atrophy [Unknown]
  - Blood creatinine increased [Unknown]

NARRATIVE: CASE EVENT DATE: 201609
